FAERS Safety Report 6069735-1 (Version None)
Quarter: 2009Q1

REPORT INFORMATION
  Report Type: 
  Country: None (occurrence: None)
  Receive Date: 20090209
  Receipt Date: 20090117
  Transmission Date: 20090719
  Serious: Yes (Death, Other)
  Sender: FDA-Public Use
  Company Number: US-AMGEN-KDL332151

PATIENT
  Sex: Female

DRUGS (4)
  1. PROCRIT [Suspect]
     Indication: MYELODYSPLASTIC SYNDROME
     Route: 065
     Dates: start: 20081201
  2. UNSPECIFIED ANTIHYPERTENSIVE AGENT [Concomitant]
  3. LASIX [Concomitant]
  4. NITROGLYCERIN [Concomitant]
     Route: 062

REACTIONS (3)
  - CEREBROVASCULAR ACCIDENT [None]
  - DEATH [None]
  - DRUG INEFFECTIVE [None]
